FAERS Safety Report 15591039 (Version 2)
Quarter: 2019Q1

REPORT INFORMATION
  Report Type: Spontaneous
  Country: US (occurrence: US)
  Receive Date: 20181107
  Receipt Date: 20190204
  Transmission Date: 20190417
  Serious: No
  Sender: FDA-Public Use
  Company Number: US-BIOFRONTERA-000513

PATIENT

DRUGS (3)
  1. AMELUZ [Suspect]
     Active Substance: AMINOLEVULINIC ACID HYDROCHLORIDE
     Indication: ACTINIC KERATOSIS
     Route: 061
     Dates: start: 20181022, end: 20181022
  2. METOPROLOL. [Concomitant]
     Active Substance: METOPROLOL
  3. PRADAXA [Concomitant]
     Active Substance: DABIGATRAN ETEXILATE MESYLATE

REACTIONS (3)
  - Application site pain [Unknown]
  - Application site rash [Recovered/Resolved]
  - Hypersensitivity [None]

NARRATIVE: CASE EVENT DATE: 20181022
